FAERS Safety Report 21271159 (Version 1)
Quarter: 2022Q3

REPORT INFORMATION
  Report Type: Spontaneous
  Country: US (occurrence: None)
  Receive Date: 20220830
  Receipt Date: 20220830
  Transmission Date: 20221026
  Serious: Yes (Hospitalization)
  Sender: FDA-Public Use
  Company Number: None

PATIENT
  Sex: Female

DRUGS (7)
  1. OMALIZUMAB [Suspect]
     Active Substance: OMALIZUMAB
  2. BENADRYL ALG [Concomitant]
  3. EPINEPHRINE INJ [Concomitant]
  4. LOVENOX INJ [Concomitant]
  5. PREDNISONE [Concomitant]
     Active Substance: PREDNISONE
  6. PROGRAF CA [Concomitant]
  7. SINGULAR TAB [Concomitant]

REACTIONS (1)
  - Anaphylactic reaction [None]
